FAERS Safety Report 17934306 (Version 42)
Quarter: 2025Q3

REPORT INFORMATION
  Report Type: Report from Study
  Country: US (occurrence: US)
  Receive Date: 20200624
  Receipt Date: 20250910
  Transmission Date: 20251021
  Serious: Yes (Hospitalization, Other)
  Sender: TAKEDA
  Company Number: US-SHIRE-US202020455

PATIENT
  Age: 53 Year
  Sex: Female
  Weight: 63 kg

DRUGS (67)
  1. HUMAN IMMUNOGLOBULIN G [Suspect]
     Active Substance: HUMAN IMMUNOGLOBULIN G
     Indication: Immunodeficiency common variable
     Dosage: 30 GRAM, Q4WEEKS
  2. HUMAN IMMUNOGLOBULIN G [Suspect]
     Active Substance: HUMAN IMMUNOGLOBULIN G
     Indication: Primary immunodeficiency syndrome
     Dosage: 90 GRAM, Q4WEEKS
     Dates: start: 20161215
  3. HUMAN IMMUNOGLOBULIN G [Suspect]
     Active Substance: HUMAN IMMUNOGLOBULIN G
     Dosage: 90 GRAM, Q4WEEKS
  4. DIPHENHYDRAMINE HYDROCHLORIDE [Concomitant]
     Active Substance: DIPHENHYDRAMINE HYDROCHLORIDE
  5. ASCORBIC ACID [Concomitant]
     Active Substance: ASCORBIC ACID
  6. SODIUM CHLORIDE [Concomitant]
     Active Substance: SODIUM CHLORIDE
  7. EPINEPHRINE [Concomitant]
     Active Substance: EPINEPHRINE
  8. MIRTAZAPINE [Concomitant]
     Active Substance: MIRTAZAPINE
  9. TRAZODONE HCL [Concomitant]
     Active Substance: TRAZODONE HYDROCHLORIDE
  10. FLUTICASONE PROPIONATE [Concomitant]
     Active Substance: FLUTICASONE PROPIONATE
  11. METHOCARBAMOL [Concomitant]
     Active Substance: METHOCARBAMOL
  12. OMEPRAZOLE [Concomitant]
     Active Substance: OMEPRAZOLE
  13. TRAMADOL HCL [Concomitant]
     Active Substance: TRAMADOL HYDROCHLORIDE
  14. MOTRIN IB [Concomitant]
     Active Substance: IBUPROFEN
  15. AIMOVIG [Concomitant]
     Active Substance: ERENUMAB-AOOE
  16. IPRATROPIUM BROMIDE [Concomitant]
     Active Substance: IPRATROPIUM BROMIDE
  17. SODIUM CHLORIDE [Concomitant]
     Active Substance: SODIUM CHLORIDE
  18. ONDANSETRON [Concomitant]
     Active Substance: ONDANSETRON
  19. LEXAPRO [Concomitant]
     Active Substance: ESCITALOPRAM OXALATE
  20. EXCEDRIN EXTRA STRENGTH [Concomitant]
     Active Substance: ACETAMINOPHEN\ASPIRIN\CAFFEINE
  21. DOXYCYCLINE HYCLATE [Concomitant]
     Active Substance: DOXYCYCLINE HYCLATE
  22. ALBUTEROL SULFATE [Concomitant]
     Active Substance: ALBUTEROL SULFATE
  23. DIETARY SUPPLEMENT\RESVERATROL [Concomitant]
     Active Substance: DIETARY SUPPLEMENT\RESVERATROL
  24. VITAMIN D3 [Concomitant]
     Active Substance: CHOLECALCIFEROL
  25. RITALIN [Concomitant]
     Active Substance: METHYLPHENIDATE HYDROCHLORIDE
  26. BIOTIN [Concomitant]
     Active Substance: BIOTIN
  27. TOPIRAMATE [Concomitant]
     Active Substance: TOPIRAMATE
  28. NURTEC ODT [Concomitant]
     Active Substance: RIMEGEPANT SULFATE
  29. SODIUM BICARBONATE [Concomitant]
     Active Substance: SODIUM BICARBONATE
  30. CYCLOBENZAPRINE [Concomitant]
     Active Substance: CYCLOBENZAPRINE
  31. BETAMETHASONE [Concomitant]
     Active Substance: BETAMETHASONE
  32. ALEVE [Concomitant]
     Active Substance: NAPROXEN SODIUM
  33. ADDERALL [Concomitant]
     Active Substance: AMPHETAMINE ASPARTATE\AMPHETAMINE SULFATE\DEXTROAMPHETAMINE SACCHARATE\DEXTROAMPHETAMINE SULFATE
  34. FAMOTIDINE [Concomitant]
     Active Substance: FAMOTIDINE
  35. HYOSCYAMINE [Concomitant]
     Active Substance: HYOSCYAMINE
  36. RIZATRIPTAN [Concomitant]
     Active Substance: RIZATRIPTAN
  37. BORIC ACID [Concomitant]
     Active Substance: BORIC ACID
  38. SUMATRIPTAN [Concomitant]
     Active Substance: SUMATRIPTAN
  39. FLUBLOK [Concomitant]
     Active Substance: INFLUENZA VIRUS VACCINE
  40. MAXALT [Concomitant]
     Active Substance: RIZATRIPTAN BENZOATE
  41. PANTOPRAZOLE [Concomitant]
     Active Substance: PANTOPRAZOLE
  42. SPIRONOLACTONE [Concomitant]
     Active Substance: SPIRONOLACTONE
  43. CEFDINIR [Concomitant]
     Active Substance: CEFDINIR
  44. VITAMIN C [Concomitant]
     Active Substance: ASCORBIC ACID
  45. XANAX [Concomitant]
     Active Substance: ALPRAZOLAM
  46. MODERNA COVID-19 VACCINE [Concomitant]
     Active Substance: ELASOMERAN
  47. TIZANIDINE HYDROCHLORIDE [Concomitant]
     Active Substance: TIZANIDINE HYDROCHLORIDE
  48. BETAMETHASONE DIPROPIONATE [Concomitant]
     Active Substance: BETAMETHASONE DIPROPIONATE
  49. TRAMADOL [Concomitant]
     Active Substance: TRAMADOL
  50. TRAZODONE [Concomitant]
     Active Substance: TRAZODONE HYDROCHLORIDE
  51. SUMATRIPTAN SUCCINATE [Concomitant]
     Active Substance: SUMATRIPTAN SUCCINATE
  52. CLARITIN-D NOS [Concomitant]
     Active Substance: LORATADINE\PSEUDOEPHEDRINE SULFATE
  53. GABAPENTIN [Concomitant]
     Active Substance: GABAPENTIN
  54. LOMOTIL [Concomitant]
     Active Substance: ATROPINE SULFATE\DIPHENOXYLATE HYDROCHLORIDE
  55. OPIUM TINCTURE [Concomitant]
     Active Substance: MORPHINE
  56. ADVAIR HFA [Concomitant]
     Active Substance: FLUTICASONE PROPIONATE\SALMETEROL XINAFOATE
  57. MELOXICAM [Concomitant]
     Active Substance: MELOXICAM
  58. GAMMAGARD LIQUID [Concomitant]
     Active Substance: HUMAN IMMUNOGLOBULIN G
  59. ALBUTEROL [Concomitant]
     Active Substance: ALBUTEROL
  60. LINZESS [Concomitant]
     Active Substance: LINACLOTIDE
  61. AUVELITY [Concomitant]
     Active Substance: BUPROPION HYDROCHLORIDE\DEXTROMETHORPHAN HYDROBROMIDE
  62. BUDESONIDE [Concomitant]
     Active Substance: BUDESONIDE
  63. PATADAY [Concomitant]
     Active Substance: OLOPATADINE HYDROCHLORIDE
     Dosage: UNK UNK, BID
  64. TRULANCE [Concomitant]
     Active Substance: PLECANATIDE
  65. Calcium plus D3 + minerals [Concomitant]
  66. FISH OIL [Concomitant]
     Active Substance: FISH OIL
  67. SYSTANE (HYPROMELLOSE 2910 (4000 MPA.S)) [Concomitant]
     Active Substance: HYPROMELLOSE 2910 (4000 MPA.S)

REACTIONS (49)
  - Autoimmune disorder [Unknown]
  - Colitis microscopic [Not Recovered/Not Resolved]
  - Pneumonia [Unknown]
  - Foot fracture [Unknown]
  - Constipation [Unknown]
  - Sinus pain [Recovered/Resolved]
  - Paranasal sinus discomfort [Recovered/Resolved]
  - Neck pain [Unknown]
  - Ulcer [Unknown]
  - Ear infection [Not Recovered/Not Resolved]
  - Acute sinusitis [Unknown]
  - Bronchitis [Unknown]
  - Bronchial hyperreactivity [Unknown]
  - Breast mass [Unknown]
  - Bone atrophy [Unknown]
  - Injury [Unknown]
  - Gastrointestinal microorganism overgrowth [Unknown]
  - Seasonal allergy [Unknown]
  - Anal incontinence [Recovered/Resolved]
  - Pancreatic enzymes decreased [Unknown]
  - Tooth fracture [Unknown]
  - Tooth infection [Unknown]
  - Ageusia [Unknown]
  - Oral pain [Unknown]
  - Toothache [Unknown]
  - Mouth swelling [Unknown]
  - Respiratory tract infection [Unknown]
  - Muscle strain [Unknown]
  - COVID-19 [Unknown]
  - Obstruction [Unknown]
  - Inflammation [Unknown]
  - Dry eye [Unknown]
  - Multiple allergies [Unknown]
  - White blood cell count increased [Unknown]
  - Sinusitis [Recovering/Resolving]
  - Contusion [Recovering/Resolving]
  - Muscle spasms [Unknown]
  - Pain [Unknown]
  - Vomiting [Unknown]
  - Dyspnoea [Unknown]
  - Arthralgia [Unknown]
  - Diarrhoea [Recovered/Resolved]
  - Abdominal pain [Unknown]
  - Headache [Not Recovered/Not Resolved]
  - Fatigue [Unknown]
  - Dizziness [Unknown]
  - Nausea [Unknown]
  - Fall [Recovering/Resolving]
  - Lower limb fracture [Recovering/Resolving]

NARRATIVE: CASE EVENT DATE: 20210311
